FAERS Safety Report 13753907 (Version 3)
Quarter: 2017Q3

REPORT INFORMATION
  Report Type: Report from Study
  Country: US (occurrence: BR)
  Receive Date: 20170714
  Receipt Date: 20170901
  Transmission Date: 20171127
  Serious: Yes (Death, Hospitalization, Other)
  Sender: FDA-Public Use
  Company Number: US-SUNOVION-2017SUN003036

PATIENT
  Sex: Male
  Weight: 67 kg

DRUGS (2)
  1. GLYCOPYRROLATE. [Suspect]
     Active Substance: GLYCOPYRROLATE
     Indication: PRODUCT USED FOR UNKNOWN INDICATION
     Dosage: UNK,UNK
     Route: 065
  2. INDACATEROL AND GLYCOPYRROLATE [Suspect]
     Active Substance: GLYCOPYRROLATE\INDACATEROL MALEATE
     Indication: EMPHYSEMA
     Dosage: UNK, BID
     Route: 055
     Dates: start: 201610, end: 201701

REACTIONS (5)
  - Diabetes mellitus [Unknown]
  - Emphysema [Fatal]
  - Inappropriate schedule of drug administration [Unknown]
  - Hypertension [Unknown]
  - Malaise [Unknown]
